FAERS Safety Report 9338335 (Version 4)
Quarter: 2014Q1

REPORT INFORMATION
  Report Type: Spontaneous
  Country: US (occurrence: US)
  Receive Date: 20130610
  Receipt Date: 20140214
  Transmission Date: 20141002
  Serious: Yes (Death)
  Sender: FDA-Public Use
  Company Number: US-PFIZER INC-2013171121

PATIENT
  Age: 62 Year
  Sex: Male
  Weight: 84.4 kg

DRUGS (8)
  1. XALKORI [Suspect]
     Indication: LUNG NEOPLASM MALIGNANT
     Dosage: 250 MG, TWICE A DAY
     Route: 048
     Dates: start: 20120322
  2. SYNTHROID [Concomitant]
     Dosage: 100 UG, UNK
  3. FLOMAX [Concomitant]
     Dosage: 0.4 MG, UNK
  4. PROSCAR [Concomitant]
     Dosage: 5 MG, UNK
  5. SIMVASTATIN [Concomitant]
     Dosage: 20 MG, UNK
  6. KEFLEX [Concomitant]
     Dosage: 250 MG, UNK
  7. BACTROBAN [Concomitant]
     Dosage: UNK
  8. ASA [Concomitant]
     Dosage: 81 MG, UNK

REACTIONS (6)
  - Death [Fatal]
  - Disease progression [Unknown]
  - Lung neoplasm malignant [Unknown]
  - Weight decreased [Unknown]
  - Blood potassium increased [Unknown]
  - Rash [Unknown]
